FAERS Safety Report 17933636 (Version 1)
Quarter: 2020Q2

REPORT INFORMATION
  Report Type: Spontaneous
  Country: US (occurrence: US)
  Receive Date: 20200623
  Receipt Date: 20200623
  Transmission Date: 20200714
  Serious: Yes (Hospitalization)
  Sender: FDA-Public Use
  Company Number: None

PATIENT
  Age: 9 Year
  Sex: Male

DRUGS (4)
  1. ONFI [Concomitant]
     Active Substance: CLOBAZAM
  2. BRIVIACT [Concomitant]
     Active Substance: BRIVARACETAM
  3. VIGABATRIN 500MG TAB [Suspect]
     Active Substance: VIGABATRIN
     Indication: STATUS EPILEPTICUS
     Route: 048
     Dates: start: 20180119
  4. FAMOTIDINE. [Concomitant]
     Active Substance: FAMOTIDINE

REACTIONS (1)
  - Brain operation [None]

NARRATIVE: CASE EVENT DATE: 20200603
